FAERS Safety Report 12275521 (Version 2)
Quarter: 2016Q2

REPORT INFORMATION
  Report Type: Spontaneous
  Country: US (occurrence: US)
  Receive Date: 20160415
  Receipt Date: 20160512
  Transmission Date: 20160815
  Serious: No
  Sender: FDA-Public Use
  Company Number: US-UCBSA-2016003917

PATIENT
  Age: 58 Year
  Sex: Female

DRUGS (5)
  1. NEUPRO [Suspect]
     Active Substance: ROTIGOTINE
     Indication: OFF LABEL USE
  2. BACLOFEN. [Concomitant]
     Active Substance: BACLOFEN
     Indication: PRODUCT USED FOR UNKNOWN INDICATION
  3. NEUPRO [Suspect]
     Active Substance: ROTIGOTINE
     Indication: CHRONIC INFLAMMATORY DEMYELINATING POLYRADICULONEUROPATHY
     Dosage: 2 MG, ONCE DAILY (QD)
     Dates: start: 20160117, end: 201601
  4. NEUPRO [Suspect]
     Active Substance: ROTIGOTINE
     Indication: HYPOAESTHESIA
     Dosage: 4 MG, ONCE DAILY (QD)
     Dates: start: 201601
  5. NEUPRO [Suspect]
     Active Substance: ROTIGOTINE
     Indication: LIMB DISCOMFORT

REACTIONS (2)
  - Drug ineffective [Unknown]
  - Off label use [Unknown]

NARRATIVE: CASE EVENT DATE: 20160117
